FAERS Safety Report 9995811 (Version 2)
Quarter: 2014Q3

REPORT INFORMATION
  Report Type: Spontaneous
  Country: US (occurrence: US)
  Receive Date: 20140311
  Receipt Date: 20140818
  Transmission Date: 20150326
  Serious: Yes (Other)
  Sender: FDA-Public Use
  Company Number: US-BAYER-2014-035561

PATIENT
  Sex: Female

DRUGS (1)
  1. YAZ [Suspect]
     Active Substance: DROSPIRENONE\ETHINYL ESTRADIOL
     Dosage: UNK
     Dates: start: 2008, end: 2009

REACTIONS (7)
  - Anxiety [None]
  - Thrombosis [None]
  - Pain [None]
  - General physical health deterioration [None]
  - Abdominal pain [None]
  - Injury [None]
  - Emotional distress [None]
